FAERS Safety Report 7027399-4 (Version None)
Quarter: 2010Q4

REPORT INFORMATION
  Report Type: 
  Country: None (occurrence: None)
  Receive Date: 20101001
  Receipt Date: 20101001
  Transmission Date: 20110411
  Serious: No
  Sender: FDA-Public Use
  Company Number: None

PATIENT

DRUGS (1)
  1. PROCRIT [Suspect]

REACTIONS (2)
  - INJECTION SITE NODULE [None]
  - PRODUCT QUALITY ISSUE [None]
